FAERS Safety Report 24590028 (Version 2)
Quarter: 2024Q4

REPORT INFORMATION
  Report Type: Report from Study
  Country: DE (occurrence: DE)
  Receive Date: 20241107
  Receipt Date: 20241202
  Transmission Date: 20250114
  Serious: Yes (Hospitalization)
  Sender: ABBVIE
  Company Number: DE-ABBVIE-5992052

PATIENT
  Age: 53 Year
  Sex: Female

DRUGS (2)
  1. FOSCARBIDOPA\FOSLEVODOPA [Suspect]
     Active Substance: FOSCARBIDOPA\FOSLEVODOPA
     Indication: Parkinson^s disease
     Dosage: SD: 0.60 ML, CRN: 0.24 ML/H, CR: 0.32 ML/H, CRH: 0.37 ML/H, ED: 0.20 ML
     Route: 058
     Dates: start: 2024
  2. FOSCARBIDOPA\FOSLEVODOPA [Suspect]
     Active Substance: FOSCARBIDOPA\FOSLEVODOPA
     Dosage: SD: 0.60 ML, CRN: 0.24 ML/H, CR: 0.38 ML/H, CRH: 0.40 ML/H, ED: 0.20 ML
     Route: 058
     Dates: start: 20240925, end: 20241104

REACTIONS (4)
  - Inflammation [Unknown]
  - On and off phenomenon [Not Recovered/Not Resolved]
  - Device issue [Unknown]
  - Infusion site inflammation [Not Recovered/Not Resolved]

NARRATIVE: CASE EVENT DATE: 20240101
